FAERS Safety Report 13821389 (Version 2)
Quarter: 2017Q3

REPORT INFORMATION
  Report Type: Spontaneous
  Country: US (occurrence: US)
  Receive Date: 20170801
  Receipt Date: 20170907
  Transmission Date: 20171127
  Serious: Yes (Life-Threatening, Hospitalization, Other)
  Sender: FDA-Public Use
  Company Number: US-ASTELLAS-2017US029922

PATIENT
  Age: 91 Year
  Sex: Male

DRUGS (6)
  1. LEXISCAN [Suspect]
     Active Substance: REGADENOSON
     Indication: CARDIAC STRESS TEST
     Dosage: 0.4 MG, TOTAL DOSE
     Route: 065
     Dates: end: 20170718
  2. AMLODIPINE [Concomitant]
     Active Substance: AMLODIPINE BESYLATE
     Indication: PRODUCT USED FOR UNKNOWN INDICATION
     Dosage: UNK UNK, UNKNOWN FREQ.
     Route: 065
  3. PRAVASTATIN. [Concomitant]
     Active Substance: PRAVASTATIN
     Indication: PRODUCT USED FOR UNKNOWN INDICATION
     Dosage: UNK UNK, UNKNOWN FREQ.
     Route: 065
  4. LOSARTAN. [Concomitant]
     Active Substance: LOSARTAN
     Indication: PRODUCT USED FOR UNKNOWN INDICATION
     Dosage: UNK UNK, UNKNOWN FREQ.
     Route: 065
  5. CARVEDILOL. [Concomitant]
     Active Substance: CARVEDILOL
     Indication: PRODUCT USED FOR UNKNOWN INDICATION
     Dosage: UNK UNK, UNKNOWN FREQ.
     Route: 065
  6. METFORMIN [Concomitant]
     Active Substance: METFORMIN HYDROCHLORIDE
     Indication: PRODUCT USED FOR UNKNOWN INDICATION
     Dosage: UNK UNK, UNKNOWN FREQ.
     Route: 065

REACTIONS (12)
  - Respiratory failure [Recovered/Resolved with Sequelae]
  - Atelectasis [Unknown]
  - Percutaneous coronary intervention [Unknown]
  - Endotracheal intubation [Unknown]
  - Disorientation [Unknown]
  - Coronary arterial stent insertion [Unknown]
  - Acute coronary syndrome [Unknown]
  - Coronary artery disease [Unknown]
  - Central venous catheterisation [Unknown]
  - Coronary artery stenosis [Unknown]
  - Pulmonary oedema [Unknown]
  - Arterial catheterisation [Unknown]

NARRATIVE: CASE EVENT DATE: 201707
